FAERS Safety Report 7519311-6 (Version None)
Quarter: 2011Q2

REPORT INFORMATION
  Report Type: 
  Country: None (occurrence: None)
  Receive Date: 20110523
  Receipt Date: 20100812
  Transmission Date: 20111010
  Serious: Yes (Hospitalization, Other)
  Sender: FDA-Public Use
  Company Number: 2009SP021085

PATIENT
  Age: 27 Year
  Sex: Female
  Weight: 80.7403 kg

DRUGS (6)
  1. NUVARING [Suspect]
     Indication: CONTRACEPTION
     Dates: start: 20070612, end: 20070801
  2. PAXIL [Concomitant]
  3. DEPO-PROVERA [Suspect]
     Indication: CONTRACEPTION
     Dates: start: 20010101, end: 20070101
  4. CLARITIN [Concomitant]
  5. NUVARING [Suspect]
  6. NUVARING [Suspect]

REACTIONS (21)
  - PANIC DISORDER [None]
  - THROMBOSIS [None]
  - INJURY [None]
  - DEHYDRATION [None]
  - PULMONARY EMBOLISM [None]
  - PNEUMONIA [None]
  - PULMONARY FIBROSIS [None]
  - VOMITING [None]
  - HEPATIC VEIN DILATATION [None]
  - THROMBOPHLEBITIS SUPERFICIAL [None]
  - HAEMATEMESIS [None]
  - PLEURAL EFFUSION [None]
  - HEPATOMEGALY [None]
  - MOVEMENT DISORDER [None]
  - PROTEIN S DEFICIENCY [None]
  - BLOOD CHOLESTEROL INCREASED [None]
  - NAUSEA [None]
  - LEUKOCYTOSIS [None]
  - HYPONATRAEMIA [None]
  - PULMONARY INFARCTION [None]
  - PROTEIN C DEFICIENCY [None]
